FAERS Safety Report 5183580-0 (Version None)
Quarter: 2006Q4

REPORT INFORMATION
  Report Type: 
  Country: None (occurrence: None)
  Receive Date: 20061220
  Receipt Date: 20060123
  Transmission Date: 20070319
  Serious: No
  Sender: FDA-Public Use
  Company Number: US-GLAXOSMITHKLINE-A0590452A

PATIENT
  Age: 74 Year
  Sex: Female

DRUGS (1)
  1. NICODERM CQ [Suspect]
     Dosage: 21MG PER DAY
     Route: 062
     Dates: start: 20051215, end: 20060123

REACTIONS (4)
  - APPLICATION SITE DISCOLOURATION [None]
  - APPLICATION SITE ERYTHEMA [None]
  - APPLICATION SITE PRURITUS [None]
  - APPLICATION SITE ULCER [None]
